FAERS Safety Report 17822980 (Version 1)
Quarter: 2020Q2

REPORT INFORMATION
  Report Type: Spontaneous
  Country: US (occurrence: US)
  Receive Date: 20200522
  Receipt Date: 20200522
  Transmission Date: 20200714
  Serious: Yes (Other)
  Sender: FDA-Public Use
  Company Number: None

PATIENT
  Age: 80 Year
  Sex: Female
  Weight: 45.9 kg

DRUGS (8)
  1. LASIX [Concomitant]
     Active Substance: FUROSEMIDE
  2. TEMOZOLOMIDE. [Suspect]
     Active Substance: TEMOZOLOMIDE
     Indication: BRAIN NEOPLASM MALIGNANT
     Route: 048
     Dates: start: 20200316
  3. CARVEDILOL. [Concomitant]
     Active Substance: CARVEDILOL
  4. VITAMIN C [Concomitant]
     Active Substance: ASCORBIC ACID
  5. BUDESONIDE-FORMOTEROL [Concomitant]
     Active Substance: BUDESONIDE\FORMOTEROL
  6. LISINOPRIL. [Concomitant]
     Active Substance: LISINOPRIL
  7. ALBUTEROL. [Concomitant]
     Active Substance: ALBUTEROL
  8. VITAMIN D [Concomitant]
     Active Substance: VITAMIN D NOS

REACTIONS (1)
  - Disease progression [None]
